FAERS Safety Report 16966869 (Version 1)
Quarter: 2019Q4

REPORT INFORMATION
  Report Type: Spontaneous
  Country: US (occurrence: US)
  Receive Date: 20191028
  Receipt Date: 20191028
  Transmission Date: 20200122
  Serious: No
  Sender: FDA-Public Use
  Company Number: US-SA-2019SA296293

PATIENT
  Age: 57 Year
  Sex: Male

DRUGS (8)
  1. HUMULIN NOS [Concomitant]
     Active Substance: INSULIN HUMAN
  2. HYDROCHLOROTH [Concomitant]
     Active Substance: HYDROCHLOROTHIAZIDE
  3. PRALUENT [Suspect]
     Active Substance: ALIROCUMAB
     Indication: OBESITY
     Dosage: 75 MG, QOW
     Route: 058
     Dates: start: 20170208
  4. CARVEDILOL. [Concomitant]
     Active Substance: CARVEDILOL
  5. TORSEMIDE. [Concomitant]
     Active Substance: TORSEMIDE
  6. HYDROCORTISONE ACEPONATE [Concomitant]
     Active Substance: HYDROCORTISONE ACEPONATE
  7. AFLURIA [INFLUENZA VACCINE] [Concomitant]
  8. LISINOPRIL/HYDROCHLOROTHIAZID [Concomitant]
     Active Substance: HYDROCHLOROTHIAZIDE\LISINOPRIL

REACTIONS (1)
  - Product dose omission [Unknown]
